FAERS Safety Report 25021398 (Version 1)
Quarter: 2025Q1

REPORT INFORMATION
  Report Type: Spontaneous
  Country: GB (occurrence: GB)
  Receive Date: 20250228
  Receipt Date: 20250228
  Transmission Date: 20250409
  Serious: Yes (Other)
  Sender: HETERO
  Company Number: GB-AMAROX PHARMA-AMR2025GB00875

PATIENT
  Sex: Male

DRUGS (1)
  1. CAPECITABINE [Suspect]
     Active Substance: CAPECITABINE
     Indication: Cholangiocarcinoma
     Route: 048

REACTIONS (2)
  - IIIrd nerve paralysis [Recovered/Resolved]
  - Neurotoxicity [Recovered/Resolved]
